FAERS Safety Report 7396783-1 (Version None)
Quarter: 2011Q2

REPORT INFORMATION
  Report Type: 
  Country: None (occurrence: None)
  Receive Date: 20110406
  Receipt Date: 20110325
  Transmission Date: 20111010
  Serious: Yes (Other)
  Sender: FDA-Public Use
  Company Number: US-JNJFOC-20110311557

PATIENT
  Sex: Female
  Weight: 47.62 kg

DRUGS (2)
  1. NICOTROL [Suspect]
     Indication: SMOKING CESSATION THERAPY
     Route: 055
  2. SYNTHROID [Concomitant]
     Indication: HYPOTHYROIDISM

REACTIONS (4)
  - RETCHING [None]
  - THROAT IRRITATION [None]
  - CHOKING [None]
  - DYSPHONIA [None]
